FAERS Safety Report 10225528 (Version 1)
Quarter: 2014Q2

REPORT INFORMATION
  Report Type: Spontaneous
  Country: US (occurrence: US)
  Receive Date: 20140609
  Receipt Date: 20140609
  Transmission Date: 20141212
  Serious: Yes (Hospitalization)
  Sender: FDA-Public Use
  Company Number: US-GE HEALTHCARE MEDICAL DIAGNOSTICS-OMPQ-PR-1405S-0574

PATIENT
  Age: 55 Year
  Sex: Female

DRUGS (2)
  1. OMNIPAQUE [Suspect]
     Indication: CHEST PAIN
     Route: 042
     Dates: start: 20140529, end: 20140529
  2. OMNIPAQUE [Suspect]
     Indication: DIAGNOSTIC PROCEDURE

REACTIONS (2)
  - Neck pain [Unknown]
  - Chest pain [Unknown]
